FAERS Safety Report 18204378 (Version 5)
Quarter: 2020Q4

REPORT INFORMATION
  Report Type: Report from Study
  Country: EG (occurrence: EG)
  Receive Date: 20200827
  Receipt Date: 20201109
  Transmission Date: 20210113
  Serious: Yes (Hospitalization, Other)
  Sender: FDA-Public Use
  Company Number: EG-JNJFOC-20200828841

PATIENT
  Age: 54 Year
  Sex: Female
  Weight: 70 kg

DRUGS (2)
  1. DARZALEX [Suspect]
     Active Substance: DARATUMUMAB
     Indication: PLASMA CELL MYELOMA
     Dosage: TOTAL 3 VIALS.
     Route: 042
     Dates: start: 20200811, end: 20200811
  2. INSULIN [Concomitant]
     Active Substance: INSULIN NOS
     Indication: DIABETES MELLITUS

REACTIONS (15)
  - Lymphopenia [Unknown]
  - Skin discolouration [Unknown]
  - Blood creatinine increased [Recovering/Resolving]
  - Neutropenia [Recovering/Resolving]
  - Platelet count decreased [Not Recovered/Not Resolved]
  - Therapeutic response decreased [Unknown]
  - Blood urea increased [Unknown]
  - Chills [Recovered/Resolved]
  - Abdominal wall abscess [Recovering/Resolving]
  - Anaemia [Unknown]
  - Hypocalcaemia [Unknown]
  - Decreased immune responsiveness [Unknown]
  - Pyrexia [Not Recovered/Not Resolved]
  - Dyspnoea [Recovered/Resolved]
  - Leukopenia [Unknown]

NARRATIVE: CASE EVENT DATE: 202008
